FAERS Safety Report 22679837 (Version 3)
Quarter: 2023Q4

REPORT INFORMATION
  Report Type: Report from Study
  Country: CA (occurrence: CA)
  Receive Date: 20230707
  Receipt Date: 20231231
  Transmission Date: 20240109
  Serious: Yes (Other)
  Sender: FDA-Public Use
  Company Number: CA-JNJFOC-20230711789

PATIENT
  Age: 55 Year
  Sex: Female

DRUGS (1)
  1. SIMPONI [Suspect]
     Active Substance: GOLIMUMAB
     Indication: Psoriatic arthropathy
     Dosage: 50 MG / 0.5 ML
     Route: 058
     Dates: start: 20180810, end: 20230510

REACTIONS (1)
  - Malignant melanoma [Unknown]
